FAERS Safety Report 7933844-X (Version None)
Quarter: 2011Q4

REPORT INFORMATION
  Report Type: 
  Country: None (occurrence: None)
  Receive Date: 20111122
  Receipt Date: 20111116
  Transmission Date: 20120403
  Serious: Yes (Other)
  Sender: FDA-Public Use
  Company Number: NO-SANOFI-AVENTIS-2011SA075604

PATIENT
  Age: 72 Year
  Sex: Male

DRUGS (4)
  1. ANTIHYPERTENSIVES [Concomitant]
     Indication: BLOOD PRESSURE INCREASED
  2. LASIX [Suspect]
     Indication: DIURETIC THERAPY
     Route: 048
     Dates: start: 20110901
  3. CHOLESTEROL- AND TRIGLYCERIDE REDUCERS [Concomitant]
  4. ANTITHROMBOTIC AGENTS [Concomitant]

REACTIONS (1)
  - POSTERIOR CAPSULE OPACIFICATION [None]
